FAERS Safety Report 20613920 (Version 1)
Quarter: 2022Q1

REPORT INFORMATION
  Report Type: Spontaneous
  Country: US (occurrence: US)
  Receive Date: 20220319
  Receipt Date: 20220319
  Transmission Date: 20220423
  Serious: Yes (Death, Other)
  Sender: FDA-Public Use
  Company Number: US-ALVOGEN-2022-ALVOGEN-119013

PATIENT
  Age: 44 Year
  Sex: Male

DRUGS (9)
  1. BUPROPION [Suspect]
     Active Substance: BUPROPION
     Indication: Suicide attempt
  2. NAPROXEN [Suspect]
     Active Substance: NAPROXEN
     Indication: Suicide attempt
  3. GABAPENTIN [Suspect]
     Active Substance: GABAPENTIN
     Indication: Suicide attempt
  4. LEVOTHYROXINE [Suspect]
     Active Substance: LEVOTHYROXINE
     Indication: Suicide attempt
  5. AMLODIPINE [Suspect]
     Active Substance: AMLODIPINE BESYLATE
     Indication: Suicide attempt
  6. DULOXETINE [Suspect]
     Active Substance: DULOXETINE
     Indication: Suicide attempt
  7. CYCLOBENZAPRINE [Suspect]
     Active Substance: CYCLOBENZAPRINE
     Indication: Suicide attempt
  8. NALTREXONE [Suspect]
     Active Substance: NALTREXONE
     Indication: Suicide attempt
  9. PREDNISONE [Suspect]
     Active Substance: PREDNISONE
     Indication: Suicide attempt

REACTIONS (1)
  - Completed suicide [Fatal]
